FAERS Safety Report 5526992-5 (Version None)
Quarter: 2007Q4

REPORT INFORMATION
  Report Type: 
  Country: None (occurrence: None)
  Receive Date: 20071127
  Receipt Date: 20071113
  Transmission Date: 20080405
  Serious: Yes (Death, Life-Threatening, Hospitalization, Other)
  Sender: FDA-Public Use
  Company Number: US-RANBAXY-2007US-11102

PATIENT

DRUGS (6)
  1. VERAPAMIL [Suspect]
     Indication: ATRIAL FIBRILLATION
     Dosage: 120 MG, UNK
     Route: 048
     Dates: start: 20071014, end: 20071014
  2. CARTEOLOL HYDROCHLORIDE [Suspect]
     Indication: HYPERTENSION
     Dosage: 120 MG, QD
     Route: 048
  3. WARFARIN POTASSIUM [Concomitant]
     Indication: ATRIAL FIBRILLATION
     Dosage: 2 MG, QD
     Route: 048
  4. METOPROLOL TARTRATE [Suspect]
     Indication: HYPERTENSION
     Dosage: 120 MG, UNK
     Route: 048
  5. ALMATOL [Concomitant]
     Indication: DRUG USE FOR UNKNOWN INDICATION
     Dosage: 25 MG, QD
     Route: 048
  6. ZANTAC [Concomitant]
     Indication: DRUG USE FOR UNKNOWN INDICATION
     Dosage: 150 MG, QD

REACTIONS (10)
  - ATRIOVENTRICULAR BLOCK COMPLETE [None]
  - BLOOD PRESSURE DECREASED [None]
  - BRADYCARDIA [None]
  - CHEST PAIN [None]
  - DISSEMINATED INTRAVASCULAR COAGULATION [None]
  - ISCHAEMIC HEPATITIS [None]
  - LISTERIA SEPSIS [None]
  - MALAISE [None]
  - ORGAN FAILURE [None]
  - RENAL FAILURE [None]
